FAERS Safety Report 10423465 (Version 2)
Quarter: 2014Q3

REPORT INFORMATION
  Report Type: Spontaneous
  Country: US (occurrence: US)
  Receive Date: 20140902
  Receipt Date: 20140902
  Transmission Date: 20150326
  Serious: No
  Sender: FDA-Public Use
  Company Number: US-PFIZER INC-2014218187

PATIENT
  Sex: Female

DRUGS (1)
  1. NEURONTIN [Suspect]
     Active Substance: GABAPENTIN
     Indication: MIGRAINE
     Dosage: 800 MG, UNK (THREE TO FOUR TIMES A DAY)

REACTIONS (1)
  - Activities of daily living impaired [Unknown]
